FAERS Safety Report 9714448 (Version 1)
Quarter: 2013Q4

REPORT INFORMATION
  Report Type: Spontaneous
  Country: US (occurrence: US)
  Receive Date: 20131126
  Receipt Date: 20131126
  Transmission Date: 20140711
  Serious: No
  Sender: FDA-Public Use
  Company Number: US-BIOGENIDEC-2013BI080667

PATIENT
  Age: 68 Year
  Sex: Female

DRUGS (7)
  1. TECFIDERA [Suspect]
     Indication: MULTIPLE SCLEROSIS
     Route: 048
     Dates: start: 20130710
  2. TECFIDERA [Suspect]
     Indication: MULTIPLE SCLEROSIS
     Route: 048
     Dates: start: 20130710
  3. METAMUCIL MULTIHEALTH FIBER [Concomitant]
  4. OMEGA 3 [Concomitant]
  5. VITAMIN D [Concomitant]
  6. CARAFATE [Concomitant]
  7. AMPYRA [Concomitant]
     Dates: start: 20130710

REACTIONS (7)
  - Weight decreased [Unknown]
  - Malaise [Recovered/Resolved]
  - Oesophageal irritation [Unknown]
  - Nausea [Unknown]
  - Vomiting [Unknown]
  - Abdominal pain [Unknown]
  - Dyspepsia [Unknown]
